FAERS Safety Report 9016237 (Version 2)
Quarter: 2013Q1

REPORT INFORMATION
  Report Type: Spontaneous
  Country: US (occurrence: US)
  Receive Date: 20130116
  Receipt Date: 20130218
  Transmission Date: 20140127
  Serious: Yes (Other)
  Sender: FDA-Public Use
  Company Number: US-TEVA-380691USA

PATIENT
  Sex: Female
  Weight: 68.55 kg

DRUGS (3)
  1. NUVIGIL [Suspect]
     Indication: HYPERSOMNIA
     Route: 048
     Dates: start: 201110, end: 20130108
  2. LEVOXYL [Concomitant]
     Indication: THYROID DISORDER
     Dosage: 112 MCGX6DAYS, 110 MCG ON 7TH
  3. CYTOMEL [Concomitant]
     Indication: THYROID DISORDER
     Dosage: 5 MILLIGRAM DAILY;
     Route: 048

REACTIONS (9)
  - Bile output decreased [Recovered/Resolved]
  - Cholecystitis [Unknown]
  - Nerve compression [Unknown]
  - Back pain [Unknown]
  - Dyspnoea [Recovered/Resolved]
  - Pyrexia [Not Recovered/Not Resolved]
  - Feeling hot [Unknown]
  - Pain [Unknown]
  - Off label use [Unknown]
